FAERS Safety Report 16438791 (Version 1)
Quarter: 2019Q2

REPORT INFORMATION
  Report Type: Spontaneous
  Country: US (occurrence: US)
  Receive Date: 20190617
  Receipt Date: 20190617
  Transmission Date: 20190711
  Serious: No
  Sender: FDA-Public Use
  Company Number: US-ELI_LILLY_AND_COMPANY-US201906006743

PATIENT
  Sex: Female
  Weight: 41.72 kg

DRUGS (2)
  1. FORTEO [Suspect]
     Active Substance: TERIPARATIDE
     Indication: OSTEOPOROSIS
     Dosage: UNK UNK, UNKNOWN
     Route: 065
  2. FORTEO [Suspect]
     Active Substance: TERIPARATIDE
     Dosage: UNK UNK, UNKNOWN
     Route: 065
     Dates: start: 201903

REACTIONS (8)
  - Pollakiuria [Unknown]
  - Chromaturia [Unknown]
  - Urine odour abnormal [Unknown]
  - Malaise [Not Recovered/Not Resolved]
  - Abdominal pain [Unknown]
  - Weight decreased [Not Recovered/Not Resolved]
  - Tremor [Not Recovered/Not Resolved]
  - Sleep disorder due to a general medical condition [Not Recovered/Not Resolved]
